FAERS Safety Report 13456934 (Version 1)
Quarter: 2017Q2

REPORT INFORMATION
  Report Type: Report from Study
  Country: DE (occurrence: DE)
  Receive Date: 20170418
  Receipt Date: 20170418
  Transmission Date: 20170830
  Serious: Yes (Hospitalization)
  Sender: FDA-Public Use
  Company Number: DE-BAXTER-2017BAX015775

PATIENT
  Sex: Female

DRUGS (20)
  1. PREDNISOLONE. [Suspect]
     Active Substance: PREDNISOLONE
     Dosage: ONCE A DAY FOR 5 DAYS, SECOND (LAST) CYCLE OF CHOP PRIOR TO EVENT COLONIC OBSTRUCTION
     Route: 048
     Dates: start: 20170317
  2. CHOLECALCIFEROL [Concomitant]
     Active Substance: CHOLECALCIFEROL
     Indication: PRODUCT USED FOR UNKNOWN INDICATION
     Dosage: FOR SUBSTITUTION OF VITAMIN D
     Route: 048
     Dates: start: 20170219
  3. AMPHOTERICIN B. [Concomitant]
     Active Substance: AMPHOTERICIN B
     Indication: PROPHYLAXIS
     Dosage: 6/D, 2-2-2
     Route: 048
     Dates: start: 20170306
  4. SULFAMETHOXAZOLE/TRIMETHOPRIM [Concomitant]
     Active Substance: SULFAMETHOXAZOLE\TRIMETHOPRIM
     Indication: INFECTION PROPHYLAXIS
     Dosage: 2/D SATURDAY/ SUNDAY
     Route: 048
     Dates: end: 20170301
  5. ENDOXAN 1G [Suspect]
     Active Substance: CYCLOPHOSPHAMIDE
     Dosage: SECOND (LAST) CYCLE OF CHOP PRIOR TO EVENT COLONIC OBSTRUCTION
     Route: 042
     Dates: start: 20170317
  6. PREDNISOLONE. [Suspect]
     Active Substance: PREDNISOLONE
     Indication: B-CELL LYMPHOMA
     Dosage: ONCE A DAY FOR 5 DAYS, FIRST CYCLE CHOP THERAPY, LAST CYCLE PRIOR TO EVENT ILEUS
     Route: 048
     Dates: start: 20170228
  7. LIPEGFILGRASTIM [Suspect]
     Active Substance: LIPEGFILGRASTIM
     Indication: B-CELL LYMPHOMA
     Dosage: DAY 4 AFTER CHEMOTHERAPY
     Route: 058
     Dates: start: 20170303
  8. LIPEGFILGRASTIM [Suspect]
     Active Substance: LIPEGFILGRASTIM
     Dosage: DAY 4 AFTER CHEMOTHERAPY
     Route: 058
     Dates: start: 20170320
  9. RITUXIMAB [Suspect]
     Active Substance: RITUXIMAB
     Indication: B-CELL LYMPHOMA
     Dosage: CYCLE 1
     Route: 042
     Dates: start: 20170223
  10. DOXORUBICIN [Suspect]
     Active Substance: DOXORUBICIN
     Dosage: SECOND (LAST) CYCLE OF CHOP PRIOR TO EVENT COLONIC OBSTRUCTION
     Route: 042
     Dates: start: 20170317
  11. LIPOSOMAL VINCRISTINE [Suspect]
     Active Substance: VINCRISTINE
     Indication: B-CELL LYMPHOMA
     Dosage: FIRST CYCLE CHOP THERAPY, LAST CYCLE PRIOR TO EVENT ILEUS
     Route: 042
     Dates: start: 20170228
  12. ENDOXAN 1G [Suspect]
     Active Substance: CYCLOPHOSPHAMIDE
     Indication: B-CELL LYMPHOMA
     Dosage: FIRST CYCLE CHOP THERAPY, LAST CYCLE PRIOR TO EVENT ILEUS
     Route: 042
     Dates: start: 20170228
  13. PANTOPRAZOLE [Concomitant]
     Active Substance: PANTOPRAZOLE
     Indication: PROPHYLAXIS
     Dosage: ON DEMAND
     Route: 048
     Dates: start: 201701
  14. ACICLOVIR [Concomitant]
     Active Substance: ACYCLOVIR
     Indication: INFECTION PROPHYLAXIS
     Route: 048
     Dates: start: 20170228
  15. CIPROFLOXACIN. [Concomitant]
     Active Substance: CIPROFLOXACIN
     Indication: INFECTION PROPHYLAXIS
     Route: 048
     Dates: start: 20170305
  16. DOXORUBICIN [Suspect]
     Active Substance: DOXORUBICIN
     Indication: B-CELL LYMPHOMA
     Dosage: FIRST CYCLE CHOP THERAPY, LAST CYCLE PRIOR TO EVENT ILEUS
     Route: 042
     Dates: start: 20170228
  17. LIPOSOMAL VINCRISTINE [Suspect]
     Active Substance: VINCRISTINE
     Dosage: SECOND (LAST) CYCLE OF CHOP PRIOR TO EVENT COLONIC OBSTRUCTION
     Route: 042
     Dates: start: 20170317
  18. RITUXIMAB [Suspect]
     Active Substance: RITUXIMAB
     Dosage: LAST DOSE PRIOR TO THE ONSET OF ILEUS
     Route: 042
     Dates: start: 20170303
  19. RITUXIMAB [Suspect]
     Active Substance: RITUXIMAB
     Dosage: CYCLE 2, LAST DOSE PRIOR TO EVENT COLONIC OBSTRUCTION
     Route: 042
     Dates: start: 20170316
  20. ALLOPURINOL. [Concomitant]
     Active Substance: ALLOPURINOL
     Indication: PROPHYLAXIS
     Route: 048
     Dates: start: 201702

REACTIONS (2)
  - Large intestinal obstruction [Unknown]
  - Ileus [Recovered/Resolved]

NARRATIVE: CASE EVENT DATE: 20170312
